FAERS Safety Report 17460971 (Version 8)
Quarter: 2020Q2

REPORT INFORMATION
  Report Type: Report from Study
  Country: US (occurrence: US)
  Receive Date: 20200226
  Receipt Date: 20200529
  Transmission Date: 20200713
  Serious: Yes (Other)
  Sender: FDA-Public Use
  Company Number: NVSC2020US048769

PATIENT
  Sex: Male

DRUGS (4)
  1. BEOVU [Suspect]
     Active Substance: BROLUCIZUMAB-DBLL
     Indication: NEOVASCULAR AGE-RELATED MACULAR DEGENERATION
     Dosage: UNK, QD (ONE SINGLE DOSE)
     Route: 065
     Dates: start: 20200204
  2. BEOVU [Suspect]
     Active Substance: BROLUCIZUMAB-DBLL
     Dosage: UNK
     Route: 047
     Dates: start: 20191106
  3. EYLEA [Concomitant]
     Active Substance: AFLIBERCEPT
     Indication: PRODUCT USED FOR UNKNOWN INDICATION
     Route: 065
  4. BEOVU [Suspect]
     Active Substance: BROLUCIZUMAB-DBLL
     Route: 047

REACTIONS (8)
  - Subretinal fluid [Recovering/Resolving]
  - Eye disorder [Unknown]
  - Intra-ocular injection complication [Unknown]
  - Vitreous floaters [Recovering/Resolving]
  - Retinal neovascularisation [Recovering/Resolving]
  - Vision blurred [Unknown]
  - Drug ineffective [Unknown]
  - Visual acuity reduced [Recovering/Resolving]
